FAERS Safety Report 15852241 (Version 2)
Quarter: 2019Q2

REPORT INFORMATION
  Report Type: Report from Study
  Country: CA (occurrence: CA)
  Receive Date: 20190122
  Receipt Date: 20190522
  Transmission Date: 20190711
  Serious: Yes (Other)
  Sender: FDA-Public Use
  Company Number: CA-AUROBINDO-AUR-APL-2019-003008

PATIENT

DRUGS (4)
  1. ALCOHOL. [Concomitant]
     Active Substance: ALCOHOL
     Indication: ANXIETY
  2. SERTRALINE [Suspect]
     Active Substance: SERTRALINE HYDROCHLORIDE
     Indication: MAJOR DEPRESSION
     Dosage: 25 MILLIGRAM
     Route: 065
  3. SERTRALINE [Suspect]
     Active Substance: SERTRALINE HYDROCHLORIDE
     Indication: MAJOR DEPRESSION
     Dosage: 100 MILLIGRAM
     Route: 065
  4. ALCOHOL. [Concomitant]
     Active Substance: ALCOHOL
     Indication: INSOMNIA
     Dosage: UNK
     Route: 065

REACTIONS (10)
  - Insomnia [Recovered/Resolved]
  - Loss of personal independence in daily activities [Recovered/Resolved]
  - Abnormal behaviour [Recovered/Resolved]
  - Drug dependence [Recovered/Resolved]
  - Euphoric mood [Recovered/Resolved]
  - Bipolar II disorder [Recovered/Resolved]
  - Hypomania [Recovered/Resolved]
  - Libido increased [Recovered/Resolved]
  - Pressure of speech [Recovered/Resolved]
  - Tachyphrenia [Recovered/Resolved]
